FAERS Safety Report 7080148-6 (Version None)
Quarter: 2010Q4

REPORT INFORMATION
  Report Type: 
  Country: None (occurrence: None)
  Receive Date: 20101103
  Receipt Date: 20101025
  Transmission Date: 20110411
  Serious: Yes (Hospitalization)
  Sender: FDA-Public Use
  Company Number: US-BIOGENIDEC-2009BI034565

PATIENT
  Age: 67 Year
  Sex: Female

DRUGS (2)
  1. AVONEX [Suspect]
     Indication: MULTIPLE SCLEROSIS
     Route: 030
     Dates: start: 20020110, end: 20090707
  2. AVONEX [Suspect]
     Route: 030
     Dates: start: 20091005

REACTIONS (4)
  - GANGRENE [None]
  - GASTRIC PERFORATION [None]
  - MEMORY IMPAIRMENT [None]
  - PERITONITIS [None]
